FAERS Safety Report 14487802 (Version 14)
Quarter: 2023Q1

REPORT INFORMATION
  Report Type: Spontaneous
  Country: US (occurrence: US)
  Receive Date: 20180205
  Receipt Date: 20230228
  Transmission Date: 20230418
  Serious: Yes (Disabling, Other)
  Sender: FDA-Public Use
  Company Number: US-PFIZER INC-2018043346

PATIENT
  Age: 76 Year
  Sex: Female

DRUGS (4)
  1. PREMPRO [Suspect]
     Active Substance: ESTROGENS, CONJUGATED\MEDROXYPROGESTERONE ACETATE
     Indication: Depressive symptom
     Dosage: UNK [ESTROGENS CONJUGATED: 0.625MG/MEDROXYPROGESTERONE ACETATE: 2.5MG]
  2. PREMPRO [Suspect]
     Active Substance: ESTROGENS, CONJUGATED\MEDROXYPROGESTERONE ACETATE
     Indication: Menopause
     Dosage: 1 DF, DAILY
     Route: 048
  3. PREMPRO [Suspect]
     Active Substance: ESTROGENS, CONJUGATED\MEDROXYPROGESTERONE ACETATE
     Indication: Hormone replacement therapy
     Dosage: 1 DF, DAILY ((0.625-2.5 MG PER TABLET), (TAKE 1 TABLET BY MOUTH DAILY))
     Route: 048
  4. PREMPRO [Suspect]
     Active Substance: ESTROGENS, CONJUGATED\MEDROXYPROGESTERONE ACETATE
     Indication: Postmenopause

REACTIONS (7)
  - Gait disturbance [Unknown]
  - Postmenopausal haemorrhage [Unknown]
  - Product dispensing error [Unknown]
  - Vaginal haemorrhage [Unknown]
  - Back disorder [Unknown]
  - Cognitive disorder [Unknown]
  - Confusional state [Unknown]
